FAERS Safety Report 8433434-9 (Version None)
Quarter: 2012Q2

REPORT INFORMATION
  Report Type: 
  Country: None (occurrence: None)
  Receive Date: 20120613
  Receipt Date: 20120604
  Transmission Date: 20120825
  Serious: Yes (Other)
  Sender: FDA-Public Use
  Company Number: FR-JNJFOC-20120603956

PATIENT
  Age: 24 Year
  Sex: Female

DRUGS (1)
  1. CONCERTA [Suspect]
     Indication: PSYCHOMOTOR HYPERACTIVITY
     Dosage: AS NEEDED
     Route: 048

REACTIONS (4)
  - HYPERPROLACTINAEMIA [None]
  - WEIGHT DECREASED [None]
  - AMENORRHOEA [None]
  - OFF LABEL USE [None]
